FAERS Safety Report 13403207 (Version 1)
Quarter: 2017Q2

REPORT INFORMATION
  Report Type: Spontaneous
  Country: US (occurrence: US)
  Receive Date: 20170404
  Receipt Date: 20170404
  Transmission Date: 20170830
  Serious: No
  Sender: FDA-Public Use
  Company Number: None

PATIENT
  Age: 56 Year
  Sex: Female
  Weight: 71.1 kg

DRUGS (1)
  1. YUVAFEM [Suspect]
     Active Substance: ESTRADIOL HEMIHYDRATE
     Indication: VULVOVAGINAL DRYNESS
     Dosage: ?          OTHER STRENGTH:10 MCG;QUANTITY:1 TABLET(S);?
     Route: 067
     Dates: start: 20170107, end: 20170403

REACTIONS (4)
  - Urinary tract infection [None]
  - Vulvovaginal dryness [None]
  - Abdominal pain upper [None]
  - Fungal infection [None]

NARRATIVE: CASE EVENT DATE: 20170403
